FAERS Safety Report 8430624-6 (Version None)
Quarter: 2012Q2

REPORT INFORMATION
  Report Type: 
  Country: None (occurrence: None)
  Receive Date: 20120606
  Receipt Date: 20120606
  Transmission Date: 20120825
  Serious: Yes (Death, Hospitalization)
  Sender: FDA-Public Use
  Company Number: None

PATIENT
  Sex: Female
  Weight: 58.3 kg

DRUGS (3)
  1. CYTARABINE [Suspect]
     Dosage: 1467 MG
     Dates: end: 20120130
  2. DAUNORUBICIN HCL [Suspect]
     Dosage: 222 MG
     Dates: end: 20120103
  3. ETOPOSIDE [Suspect]
     Dosage: 686 MG
     Dates: end: 20120130

REACTIONS (17)
  - RESPIRATORY DISTRESS [None]
  - PULMONARY HAEMORRHAGE [None]
  - BLOOD CULTURE POSITIVE [None]
  - FLUID OVERLOAD [None]
  - VENTRICULAR FIBRILLATION [None]
  - BLOOD URIC ACID INCREASED [None]
  - ASPARTATE AMINOTRANSFERASE INCREASED [None]
  - TUMOUR LYSIS SYNDROME [None]
  - BLOOD POTASSIUM INCREASED [None]
  - BLOOD BILIRUBIN INCREASED [None]
  - COAGULOPATHY [None]
  - HEPATOSPLENOMEGALY [None]
  - DISSEMINATED INTRAVASCULAR COAGULATION [None]
  - CANDIDA TEST POSITIVE [None]
  - CARDIAC ARREST [None]
  - CONTINUOUS HAEMODIAFILTRATION [None]
  - ENTEROBACTER TEST POSITIVE [None]
